FAERS Safety Report 15034210 (Version 2)
Quarter: 2020Q1

REPORT INFORMATION
  Report Type: Report from Study
  Country: US (occurrence: US)
  Receive Date: 20180620
  Receipt Date: 20200102
  Transmission Date: 20200409
  Serious: Yes (Other)
  Sender: FDA-Public Use
  Company Number: US-ROCHE-2140137

PATIENT
  Age: 62 Year
  Sex: Female
  Weight: 62.2 kg

DRUGS (2)
  1. OCREVUS [Suspect]
     Active Substance: OCRELIZUMAB
     Dosage: MOST RECENT
     Route: 065
     Dates: start: 20180406
  2. OCREVUS [Suspect]
     Active Substance: OCRELIZUMAB
     Indication: RELAPSING-REMITTING MULTIPLE SCLEROSIS
     Dosage: DOSES ON 10/AUG/2017, 24/AUG/2017,12/FEB/2018, 16/OCT/2018, 19/APR/2019
     Route: 065
     Dates: start: 2017

REACTIONS (3)
  - Arthropod bite [Recovering/Resolving]
  - Cellulitis [Recovering/Resolving]
  - Dental caries [Not Recovered/Not Resolved]

NARRATIVE: CASE EVENT DATE: 20180530
